FAERS Safety Report 8952759 (Version 1)
Quarter: 2012Q4

REPORT INFORMATION
  Report Type: 
  Country: DE (occurrence: DE)
  Receive Date: 20121205
  Receipt Date: 20121205
  Transmission Date: 20130627
  Serious: Yes (Death, Life-Threatening, Hospitalization)
  Sender: FDA-Public Use
  Company Number: DE-BRISTOL-MYERS SQUIBB COMPANY-17161506

PATIENT
  Age: 30 Year
  Sex: Male

DRUGS (2)
  1. METFORMIN HCL [Suspect]
     Indication: WEIGHT INCREASED
     Route: 048
     Dates: start: 20120704, end: 20120920
  2. CLOZAPINE [Suspect]
     Dosage: 12.5-250mg:Apr-15Jun12,300mg:16Jun-3Jul12,500mg:4Jul12 onwards
     Route: 048
     Dates: start: 201204

REACTIONS (1)
  - Cardiac arrest [Unknown]
